FAERS Safety Report 5314088-7 (Version None)
Quarter: 2007Q2

REPORT INFORMATION
  Report Type: 
  Country: None (occurrence: None)
  Receive Date: 20070501
  Receipt Date: 20070419
  Transmission Date: 20071010
  Serious: Yes (Other)
  Sender: FDA-Public Use
  Company Number: US-PFIZER INC-2007032155

PATIENT
  Sex: Male
  Weight: 77.272 kg

DRUGS (3)
  1. LIPITOR [Suspect]
     Indication: BLOOD CHOLESTEROL INCREASED
     Dates: start: 20030101
  2. ACETYLSALICYLIC ACID SRT [Concomitant]
  3. FOLIC ACID [Concomitant]

REACTIONS (5)
  - ABASIA [None]
  - BLOOD CHOLESTEROL INCREASED [None]
  - JOINT LOCK [None]
  - LOW DENSITY LIPOPROTEIN INCREASED [None]
  - PAIN IN EXTREMITY [None]
